FAERS Safety Report 7954260-0 (Version None)
Quarter: 2011Q4

REPORT INFORMATION
  Report Type: 
  Country: None (occurrence: None)
  Receive Date: 20111202
  Receipt Date: 20111201
  Transmission Date: 20120403
  Serious: No
  Sender: FDA-Public Use
  Company Number: US-B.I. PHARMACEUTICALS,INC./RIDGEFIELD-2011-BP-10542BP

PATIENT
  Age: 78 Year
  Sex: Male
  Weight: 93.44 kg

DRUGS (12)
  1. PRADAXA [Suspect]
     Indication: ATRIAL FIBRILLATION
     Dosage: 300 MG
     Route: 048
     Dates: start: 20110316
  2. ACYCLOVIR [Concomitant]
  3. VITAMIN B-12 [Concomitant]
     Route: 030
  4. DARVOCET-N 100 (PROPOXYPEHNE NAPSYLATE) [Concomitant]
     Route: 048
  5. TYLENOL W/ CODEINE (ACETAMINOPHEN WITH CODEINE) [Concomitant]
  6. VALTREX [Concomitant]
     Dosage: 3000 MG
     Route: 048
  7. CIALIS [Concomitant]
     Route: 048
  8. MAGIC MOUTHWASH [Concomitant]
  9. ASPIRIN [Concomitant]
     Indication: ATRIAL FIBRILLATION
  10. AMITRIPTYLINE HCL [Concomitant]
     Indication: NERVOUSNESS
     Dosage: 10 MG
     Route: 048
     Dates: start: 20090101
  11. ZOSTAVAX (ZOSTER VACCINE LIVE) [Concomitant]
     Route: 058
  12. SYSTANE [Concomitant]

REACTIONS (8)
  - SPLENIC GRANULOMA [None]
  - BLOOD URINE PRESENT [None]
  - DYSPEPSIA [None]
  - KIDNEY ENLARGEMENT [None]
  - HAEMATOSPERMIA [None]
  - LETHARGY [None]
  - GRANULOMATOUS LIVER DISEASE [None]
  - COGNITIVE DISORDER [None]
